FAERS Safety Report 9994888 (Version 1)
Quarter: 2014Q1

REPORT INFORMATION
  Report Type: Report from Study
  Country: US (occurrence: US)
  Receive Date: 20140311
  Receipt Date: 20140311
  Transmission Date: 20141002
  Serious: Yes (Hospitalization)
  Sender: FDA-Public Use
  Company Number: US-JNJFOC-20140300403

PATIENT
  Sex: Male
  Weight: 90.72 kg

DRUGS (3)
  1. STELARA [Suspect]
     Indication: PSORIASIS
     Route: 058
     Dates: start: 2012
  2. TRIAMCINOLONE [Suspect]
     Indication: PSORIASIS
     Route: 061
  3. KLONOPIN [Concomitant]
     Dosage: PRESCRIBED 3 TIMES DAILY BUT TOOK ONLY ONCE DAILY
     Route: 065

REACTIONS (7)
  - Pneumonia [Recovered/Resolved]
  - Infection [Recovered/Resolved]
  - Drug ineffective [Not Recovered/Not Resolved]
  - Body height decreased [Unknown]
  - Weight increased [Recovered/Resolved]
  - Weight decreased [Unknown]
  - Psoriasis [Not Recovered/Not Resolved]
